FAERS Safety Report 13913049 (Version 1)
Quarter: 2017Q3

REPORT INFORMATION
  Report Type: Spontaneous
  Country: US (occurrence: US)
  Receive Date: 20170828
  Receipt Date: 20170828
  Transmission Date: 20171127
  Serious: No
  Sender: FDA-Public Use
  Company Number: US-PRINSTON PHARMACEUTICAL INC.-2017PRN00281

PATIENT
  Age: 53 Year
  Sex: Female
  Weight: 82.54 kg

DRUGS (4)
  1. PREVACID [Concomitant]
     Active Substance: LANSOPRAZOLE
  2. PAROXETINE. [Suspect]
     Active Substance: PAROXETINE
     Dosage: 10 MG, ONCE
     Route: 048
     Dates: start: 20170524, end: 20170524
  3. PAROXETINE. [Suspect]
     Active Substance: PAROXETINE
     Dosage: 5 MG, ONCE
     Route: 048
     Dates: start: 20170522, end: 20170522
  4. PAROXETINE. [Suspect]
     Active Substance: PAROXETINE
     Indication: HOT FLUSH
     Dosage: 10 MG, 1X/DAY
     Route: 048
     Dates: start: 20170515, end: 20170521

REACTIONS (6)
  - Oral mucosal blistering [Recovered/Resolved]
  - Off label use [Recovered/Resolved]
  - Lip swelling [Recovered/Resolved]
  - Oral discomfort [Recovered/Resolved]
  - Lip exfoliation [Recovered/Resolved]
  - Stomatitis [Recovered/Resolved]

NARRATIVE: CASE EVENT DATE: 20170515
